FAERS Safety Report 4412835-X (Version None)
Quarter: 2004Q3

REPORT INFORMATION
  Report Type: 
  Country: None (occurrence: None)
  Receive Date: 20040730
  Receipt Date: 20040730
  Transmission Date: 20050211
  Serious: Yes (Disabling)
  Sender: FDA-Public Use
  Company Number: None

PATIENT
  Sex: Female
  Weight: 133.3575 kg

DRUGS (3)
  1. PAROXETINE HYDROCHLORIDE 20 MG GENERICS UK LIMITED [Suspect]
     Indication: ANXIETY
     Dosage: 1 PER DAY
     Dates: start: 20020810, end: 20040731
  2. PAROXETINE HYDROCHLORIDE 20 MG GENERICS UK LIMITED [Suspect]
     Indication: DEPRESSION
     Dosage: 1 PER DAY
     Dates: start: 20020810, end: 20040731
  3. PAROXETINE HYDROCHLORIDE 20 MG GENERICS UK LIMITED [Suspect]
     Indication: STRESS SYMPTOMS
     Dosage: 1 PER DAY
     Dates: start: 20020810, end: 20040731

REACTIONS (6)
  - INCONTINENCE [None]
  - PSYCHIATRIC SYMPTOM [None]
  - SELF ESTEEM DECREASED [None]
  - TOOTH DISORDER [None]
  - TOOTH LOSS [None]
  - WEIGHT INCREASED [None]
